FAERS Safety Report 7297234-8 (Version None)
Quarter: 2010Q4

REPORT INFORMATION
  Report Type: 
  Country: None (occurrence: None)
  Receive Date: 20101227
  Receipt Date: 20091104
  Transmission Date: 20110411
  Serious: Yes (Hospitalization)
  Sender: FDA-Public Use
  Company Number: WAES 0911USA00932

PATIENT
  Age: 78 Year
  Sex: Male

DRUGS (11)
  1. ZETIA [Suspect]
     Indication: BLOOD CHOLESTEROL INCREASED
     Dosage: 10 MG/DAILY/PO
     Route: 048
     Dates: start: 20090401
  2. CELEBREX [Concomitant]
  3. CRESTOR [Concomitant]
  4. ELIGARD [Concomitant]
  5. PLAVIX [Concomitant]
  6. UROXATRAL [Concomitant]
  7. ALLOPURINOL [Concomitant]
  8. ALPRAZOLAM [Concomitant]
  9. LEVOTHYROXINE SODIUM [Concomitant]
  10. METOPROLOL [Concomitant]
  11. NITROGLYCERIN [Concomitant]

REACTIONS (8)
  - ARTHRITIS [None]
  - CHEST DISCOMFORT [None]
  - CHEST PAIN [None]
  - DYSPNOEA [None]
  - DYSURIA [None]
  - FULL BLOOD COUNT DECREASED [None]
  - MYALGIA [None]
  - TOOTH ABSCESS [None]
